FAERS Safety Report 24087725 (Version 1)
Quarter: 2024Q3

REPORT INFORMATION
  Report Type: Spontaneous
  Country: CO (occurrence: CO)
  Receive Date: 20240715
  Receipt Date: 20240715
  Transmission Date: 20241017
  Serious: Yes (Hospitalization)
  Sender: STRIDES
  Company Number: CO-STRIDES ARCOLAB LIMITED-2024SP008366

PATIENT
  Age: 70 Year
  Sex: Female

DRUGS (4)
  1. METHOTREXATE [Suspect]
     Active Substance: METHOTREXATE
     Indication: Rheumatoid arthritis
     Dosage: UNK
     Route: 065
  2. METHOTREXATE [Suspect]
     Active Substance: METHOTREXATE
     Indication: Immunosuppressant drug therapy
  3. ABATACEPT [Suspect]
     Active Substance: ABATACEPT
     Indication: Rheumatoid arthritis
     Dosage: UNK
     Route: 065
  4. ABATACEPT [Suspect]
     Active Substance: ABATACEPT
     Indication: Immunosuppressant drug therapy

REACTIONS (7)
  - Uveitis [Recovered/Resolved]
  - Granuloma [Recovered/Resolved]
  - Condition aggravated [Recovered/Resolved]
  - Necrotising retinitis [Recovered/Resolved]
  - Toxoplasmosis [Recovered/Resolved]
  - Epstein-Barr virus infection [Recovered/Resolved]
  - Coinfection [Recovered/Resolved]
